FAERS Safety Report 15265057 (Version 1)
Quarter: 2018Q3

REPORT INFORMATION
  Report Type: Spontaneous
  Country: US (occurrence: US)
  Receive Date: 20180810
  Receipt Date: 20180810
  Transmission Date: 20181010
  Serious: Yes (Hospitalization)
  Sender: FDA-Public Use
  Company Number: US-LANNETT COMPANY, INC.-US-2018LAN000932

PATIENT

DRUGS (2)
  1. PHENTERMINE HYDROCHLORIDE (37.5MG) [Suspect]
     Active Substance: PHENTERMINE HYDROCHLORIDE
     Dosage: 37.5 MG, QD
     Route: 048
     Dates: start: 20180703
  2. PHENTERMINE HYDROCHLORIDE (37.5MG) [Suspect]
     Active Substance: PHENTERMINE HYDROCHLORIDE
     Indication: WEIGHT INCREASED
     Dosage: 37.5 MG, QD
     Route: 048
     Dates: start: 201806

REACTIONS (4)
  - Drug ineffective [Not Recovered/Not Resolved]
  - Product storage error [Not Recovered/Not Resolved]
  - Streptococcal infection [Not Recovered/Not Resolved]
  - Staphylococcal infection [Not Recovered/Not Resolved]

NARRATIVE: CASE EVENT DATE: 2018
